FAERS Safety Report 19467786 (Version 1)
Quarter: 2021Q2

REPORT INFORMATION
  Report Type: Not Available
  Country: None (occurrence: None)
  Receive Date: 20210628
  Receipt Date: 20210628
  Transmission Date: 20210717
  Serious: No
  Sender: FDA-Public Use
  Company Number: US-AKORN-169063

PATIENT
  Age: 20 Year
  Sex: Female

DRUGS (1)
  1. MYORISAN [Suspect]
     Active Substance: ISOTRETINOIN

REACTIONS (4)
  - Dizziness [Unknown]
  - Nausea [Unknown]
  - Abdominal pain [Unknown]
  - Dermatitis [Unknown]
